FAERS Safety Report 7040687-0 (Version None)
Quarter: 2010Q4

REPORT INFORMATION
  Report Type: 
  Country: None (occurrence: None)
  Receive Date: 20101013
  Receipt Date: 20101004
  Transmission Date: 20110411
  Serious: Yes (Life-Threatening, Hospitalization)
  Sender: FDA-Public Use
  Company Number: AU-BIOGENIDEC-2010BI030488

PATIENT
  Age: 30 Year
  Sex: Female

DRUGS (7)
  1. TYSABRI [Suspect]
     Indication: RELAPSING-REMITTING MULTIPLE SCLEROSIS
     Route: 042
     Dates: start: 20090305
  2. OXYCODONE HCL [Concomitant]
     Indication: MUSCULOSKELETAL PAIN
     Dates: start: 20100709
  3. OXYCODONE HCL [Concomitant]
     Indication: NECK PAIN
     Dates: start: 20100709
  4. OXYCODONE HCL [Concomitant]
     Indication: PAIN IN EXTREMITY
     Dates: start: 20100709
  5. DIAZEPAM [Concomitant]
     Dates: start: 20100709
  6. DURAMINE NOS [Concomitant]
     Indication: FATIGUE
     Dates: start: 20100601
  7. ALCOHOL [Concomitant]
     Dates: start: 20100709

REACTIONS (1)
  - MULTIPLE DRUG OVERDOSE [None]
